FAERS Safety Report 16119492 (Version 1)
Quarter: 2019Q1

REPORT INFORMATION
  Report Type: Spontaneous
  Country: US (occurrence: US)
  Receive Date: 20190326
  Receipt Date: 20190326
  Transmission Date: 20190418
  Serious: No
  Sender: FDA-Public Use
  Company Number: US-TEVA-2019-US-1020480

PATIENT
  Sex: Female
  Weight: 90.72 kg

DRUGS (1)
  1. CYCLOBENZAPRINE. [Suspect]
     Active Substance: CYCLOBENZAPRINE
     Indication: MUSCLE SPASMS
     Dosage: 30 MILLIGRAM DAILY; AS NEEDED

REACTIONS (2)
  - Fibromyalgia [Unknown]
  - Inappropriate schedule of product administration [Unknown]
